FAERS Safety Report 13721867 (Version 1)
Quarter: 2017Q3

REPORT INFORMATION
  Report Type: Spontaneous
  Country: US (occurrence: US)
  Receive Date: 20170706
  Receipt Date: 20170706
  Transmission Date: 20171127
  Serious: No
  Sender: FDA-Public Use
  Company Number: US-SUN PHARMACEUTICAL INDUSTRIES LTD-2017US-141290

PATIENT
  Sex: Female

DRUGS (2)
  1. ABSORICA [Suspect]
     Active Substance: ISOTRETINOIN
     Indication: ACNE
     Dosage: 30 MG, QD
     Route: 065
     Dates: start: 2017
  2. ABSORICA [Suspect]
     Active Substance: ISOTRETINOIN
     Dosage: 30 MG, BID
     Route: 065
     Dates: start: 20170210

REACTIONS (6)
  - Migraine [Recovered/Resolved]
  - Inappropriate schedule of drug administration [Unknown]
  - Skin exfoliation [Recovered/Resolved]
  - Drug prescribing error [Unknown]
  - Photosensitivity reaction [Recovered/Resolved]
  - Muscle spasms [Recovered/Resolved]

NARRATIVE: CASE EVENT DATE: 2017
